FAERS Safety Report 5981798-8 (Version None)
Quarter: 2008Q4

REPORT INFORMATION
  Report Type: 
  Country: None (occurrence: None)
  Receive Date: 20081205
  Receipt Date: 20081125
  Transmission Date: 20090506
  Serious: Yes (Hospitalization, Other)
  Sender: FDA-Public Use
  Company Number: US-BAXTER-2008BH012714

PATIENT
  Age: 52 Year
  Sex: Male
  Weight: 72 kg

DRUGS (6)
  1. GAMMAGARD LIQUID [Suspect]
     Indication: CRYOGLOBULINAEMIA
     Route: 042
  2. IMMUNE GLOBULIN INTRAVENOUS (HUMAN) [Suspect]
     Indication: CRYOGLOBULINAEMIA
     Route: 042
  3. INTERFERON [Concomitant]
     Indication: HEPATITIS C
     Route: 065
  4. RIBAVIRIN [Concomitant]
     Indication: HEPATITIS C
     Route: 065
  5. SILVADENE [Concomitant]
     Indication: DRUG USE FOR UNKNOWN INDICATION
     Route: 061
  6. VITAMIN E [Concomitant]
     Indication: DRUG USE FOR UNKNOWN INDICATION
     Route: 065

REACTIONS (5)
  - BACK PAIN [None]
  - DYSPNOEA [None]
  - MUSCLE SPASMS [None]
  - RENAL IMPAIRMENT [None]
  - TRANSFUSION REACTION [None]
